FAERS Safety Report 17173002 (Version 1)
Quarter: 2019Q4

REPORT INFORMATION
  Report Type: Spontaneous
  Country: US (occurrence: US)
  Receive Date: 20191218
  Receipt Date: 20191218
  Transmission Date: 20200122
  Serious: No
  Sender: FDA-Public Use
  Company Number: US-ADAMAS PHARMA, LLC-2019ADA02166

PATIENT
  Sex: Male

DRUGS (5)
  1. UNSPECIFIED LEVODOPA-BASED THERAPY [Concomitant]
     Active Substance: LEVODOPA
  2. GOCOVRI [Suspect]
     Active Substance: AMANTADINE
     Dosage: 274 MG, 1X/DAY AT BEDTIME
     Route: 048
     Dates: start: 2019
  3. AMANTADINE. [Concomitant]
     Active Substance: AMANTADINE HYDROCHLORIDE
     Dosage: UNK
     Dates: start: 2019, end: 2019
  4. GOCOVRI [Suspect]
     Active Substance: AMANTADINE
     Indication: DYSKINESIA
     Dosage: 137 MG, 1X/DAY AT BEDTIME
     Route: 048
     Dates: start: 20190604, end: 20190610
  5. GOCOVRI [Suspect]
     Active Substance: AMANTADINE
     Dosage: 274 MG, 1X/DAY AT BEDTIME
     Route: 048
     Dates: start: 20190611, end: 2019

REACTIONS (4)
  - Inappropriate schedule of product administration [Not Recovered/Not Resolved]
  - Product substitution [Recovered/Resolved]
  - Product dose omission [Recovered/Resolved]
  - Muscle spasms [Not Recovered/Not Resolved]

NARRATIVE: CASE EVENT DATE: 2019
